FAERS Safety Report 8887683 (Version 3)
Quarter: 2013Q1

REPORT INFORMATION
  Report Type: Spontaneous
  Country: IT (occurrence: IT)
  Receive Date: 20121106
  Receipt Date: 20130129
  Transmission Date: 20140127
  Serious: Yes (Life-Threatening, Hospitalization)
  Sender: FDA-Public Use
  Company Number: IT-ELI_LILLY_AND_COMPANY-IT201210009620

PATIENT
  Age: 64 Year
  Sex: Female

DRUGS (6)
  1. ZYPADHERA [Suspect]
     Indication: SCHIZOPHRENIA
     Dosage: 300 MG, 2/M
     Route: 030
     Dates: start: 20120618, end: 20121027
  2. DEPAKIN [Concomitant]
     Dosage: 500 MG, UNKNOWN
  3. SIMVASTATINE [Concomitant]
     Dosage: 20 MG, UNKNOWN
  4. METINAL IDANTOINA [Concomitant]
     Dosage: 1 G, UNKNOWN
  5. EUTIROX [Concomitant]
     Dosage: 100 UG, UNKNOWN
  6. EUTIROX [Concomitant]
     Dosage: 125 UG, UNKNOWN

REACTIONS (1)
  - Coma [Recovered/Resolved]
